FAERS Safety Report 7506217-1 (Version None)
Quarter: 2011Q2

REPORT INFORMATION
  Report Type: 
  Country: None (occurrence: None)
  Receive Date: 20110526
  Receipt Date: 20110519
  Transmission Date: 20111010
  Serious: Yes (Other)
  Sender: FDA-Public Use
  Company Number: US-PFIZER INC-2011109063

PATIENT
  Sex: Female
  Weight: 58.957 kg

DRUGS (7)
  1. SYNTHROID [Concomitant]
     Indication: THYROID DISORDER
     Dosage: 112 UG, 1X/DAY
     Route: 048
  2. XALATAN [Suspect]
     Dosage: UNK
  3. LATANOPROST [Suspect]
     Indication: GLAUCOMA
     Dosage: I DROP IN EACH EYE DAILY
     Route: 047
     Dates: start: 20110506, end: 20110501
  4. LATANOPROST [Suspect]
     Indication: INTRAOCULAR PRESSURE INCREASED
  5. CLONAZEPAM [Concomitant]
     Dosage: UNK
  6. HYDROCHLOROTHIAZIDE [Concomitant]
     Indication: HYPERTENSION
     Dosage: 25 MG, 1X/DAY
  7. CETIRIZINE [Concomitant]
     Indication: HYPERSENSITIVITY
     Dosage: 10 MG, 1X/DAY

REACTIONS (5)
  - DRY SKIN [None]
  - EYE SWELLING [None]
  - OCULAR HYPERAEMIA [None]
  - DRY EYE [None]
  - EYE INFECTION BACTERIAL [None]
